FAERS Safety Report 16803710 (Version 1)
Quarter: 2019Q3

REPORT INFORMATION
  Report Type: Spontaneous
  Country: SE (occurrence: SE)
  Receive Date: 20190913
  Receipt Date: 20190913
  Transmission Date: 20191005
  Serious: Yes (Hospitalization)
  Sender: FDA-Public Use
  Company Number: SE-TEVA-2019-SE-1105998

PATIENT
  Age: 42 Year
  Sex: Female

DRUGS (3)
  1. LERGIGAN (PROMETHAZINE HYDROCHLORIDE) [Suspect]
     Active Substance: PROMETHAZINE HYDROCHLORIDE
     Route: 048
     Dates: start: 20190509, end: 20190509
  2. PROPAVAN [Suspect]
     Active Substance: PROPIOMAZINE
     Route: 065
     Dates: start: 20190509, end: 20190509
  3. STESOLID [Suspect]
     Active Substance: DIAZEPAM
     Route: 065
     Dates: start: 20190509, end: 20190509

REACTIONS (2)
  - Intentional overdose [Unknown]
  - Intentional self-injury [Unknown]

NARRATIVE: CASE EVENT DATE: 20190509
